FAERS Safety Report 8469674-2 (Version None)
Quarter: 2012Q2

REPORT INFORMATION
  Report Type: 
  Country: None (occurrence: None)
  Receive Date: 20120626
  Receipt Date: 20120622
  Transmission Date: 20120825
  Serious: Yes (Other)
  Sender: FDA-Public Use
  Company Number: AR-ROCHE-1061537

PATIENT
  Sex: Female

DRUGS (7)
  1. ALBUTEROL [Concomitant]
  2. CORTICOIDS [Concomitant]
  3. BUDESONIDE [Concomitant]
  4. XOLAIR [Suspect]
     Dates: start: 20120616
  5. OMEPRAZOLE [Concomitant]
  6. ENALAPRIL MALEATE [Concomitant]
  7. XOLAIR [Suspect]
     Indication: ASTHMA
     Dosage: ONE AMPOULE EVERY 15 DAYS.
     Dates: start: 20050101, end: 20110111

REACTIONS (9)
  - BRONCHOSPASM [None]
  - FATIGUE [None]
  - INCREASED UPPER AIRWAY SECRETION [None]
  - BLOOD IMMUNOGLOBULIN E INCREASED [None]
  - AGITATION [None]
  - NASOPHARYNGITIS [None]
  - ANAEMIA [None]
  - FIBROMA [None]
  - INFLUENZA LIKE ILLNESS [None]
